FAERS Safety Report 8523207-0 (Version None)
Quarter: 2012Q3

REPORT INFORMATION
  Report Type: 
  Country: None (occurrence: None)
  Receive Date: 20120713
  Receipt Date: 20120713
  Transmission Date: 20120928
  Serious: Yes (Other)
  Sender: FDA-Public Use
  Company Number: None

PATIENT
  Age: 38 Year
  Sex: Male
  Weight: 63.5036 kg

DRUGS (9)
  1. CLARITIN [Concomitant]
  2. RANITIDINE [Concomitant]
  3. FLONASE [Concomitant]
  4. ASTELINE [Concomitant]
  5. VITAMIN D [Concomitant]
  6. LEVOTHYROXINE SODIUM [Concomitant]
  7. LEVAQUIN [Suspect]
     Indication: RESPIRATORY TRACT INFECTION
     Dosage: 750 MG ONCE DAILY PO
     Route: 048
     Dates: start: 20120502, end: 20120505
  8. FLOVENT HFA [Concomitant]
  9. ALBUTEROL [Concomitant]

REACTIONS (3)
  - VENTRICULAR EXTRASYSTOLES [None]
  - EXTRASYSTOLES [None]
  - PANIC ATTACK [None]
